FAERS Safety Report 4405315-9 (Version None)
Quarter: 2004Q3

REPORT INFORMATION
  Report Type: 
  Country: None (occurrence: None)
  Receive Date: 20040723
  Receipt Date: 20040714
  Transmission Date: 20050211
  Serious: Yes (Hospitalization)
  Sender: FDA-Public Use
  Company Number: JP-BRISTOL-MYERS SQUIBB COMPANY-12642237

PATIENT
  Age: 54 Year
  Sex: Female

DRUGS (4)
  1. TAXOL [Suspect]
     Indication: BREAST CANCER
     Dosage: THERAPY WEEKLY FROM 10-JUN-2003 TO 20-AUG-2003
     Route: 042
     Dates: start: 20030820, end: 20030820
  2. DECADRON [Concomitant]
     Route: 042
     Dates: start: 20030610, end: 20030820
  3. KYTRIL [Concomitant]
     Route: 042
     Dates: start: 20030610, end: 20030820
  4. GASTER [Concomitant]
     Route: 042
     Dates: start: 20030610, end: 20030820

REACTIONS (4)
  - INFECTION IN AN IMMUNOCOMPROMISED HOST [None]
  - NECROTISING FASCIITIS [None]
  - SKIN GRAFT [None]
  - STAPHYLOCOCCAL INFECTION [None]
